FAERS Safety Report 25719429 (Version 1)
Quarter: 2025Q3

REPORT INFORMATION
  Report Type: Report from Study
  Country: EU (occurrence: EU)
  Receive Date: 20250824
  Receipt Date: 20250824
  Transmission Date: 20251020
  Serious: Yes (Other)
  Sender: ABBVIE
  Company Number: EU-ABBVIE-1659779US

PATIENT
  Age: 78 Year
  Sex: Male

DRUGS (3)
  1. DEXAMETHASONE [Suspect]
     Active Substance: DEXAMETHASONE
     Indication: Serpiginous choroiditis
     Route: 050
  2. MYCOPHENOLATE MOFETIL [Suspect]
     Active Substance: MYCOPHENOLATE MOFETIL
     Indication: Serpiginous choroiditis
     Dosage: 2 GRAM DAILY;
     Route: 062
  3. PREDNISONE [Suspect]
     Active Substance: PREDNISONE
     Indication: Serpiginous choroiditis
     Dosage: 10 MILLIGRAM DAILY;
     Route: 062

REACTIONS (4)
  - Serpiginous choroiditis [Unknown]
  - Osteoporosis [Unknown]
  - Off label use [Unknown]
  - Intraocular pressure increased [Recovered/Resolved]
